FAERS Safety Report 10200695 (Version 1)
Quarter: 2014Q2

REPORT INFORMATION
  Report Type: Spontaneous
  Country: TW (occurrence: TW)
  Receive Date: 20140528
  Receipt Date: 20140528
  Transmission Date: 20141212
  Serious: Yes (Hospitalization)
  Sender: FDA-Public Use
  Company Number: TW-AMGEN INC.-TWNSP2014039580

PATIENT
  Age: 64 Year
  Sex: Female

DRUGS (7)
  1. ENBREL [Suspect]
     Indication: RHEUMATOID ARTHRITIS
     Dosage: 25 MG, WEEKLY
     Route: 058
     Dates: start: 20111021
  2. ISONIAZID [Concomitant]
     Indication: RHEUMATOID ARTHRITIS
     Dosage: UNK
  3. ULTRACET [Concomitant]
     Indication: RHEUMATOID ARTHRITIS
     Dosage: UNK
  4. ARCOXIA [Concomitant]
     Indication: RHEUMATOID ARTHRITIS
     Dosage: UNK
  5. QUININE [Concomitant]
     Indication: RHEUMATOID ARTHRITIS
     Dosage: UNK
  6. ARHEUMA [Concomitant]
     Indication: RHEUMATOID ARTHRITIS
     Dosage: UNK
  7. ISMO [Concomitant]
     Indication: HYPERTENSION
     Dosage: UNK

REACTIONS (1)
  - Skin ulcer [Not Recovered/Not Resolved]
